FAERS Safety Report 25227546 (Version 2)
Quarter: 2025Q4

REPORT INFORMATION
  Report Type: Report from Study
  Country: CO (occurrence: CO)
  Receive Date: 20250422
  Receipt Date: 20251124
  Transmission Date: 20260117
  Serious: Yes (Hospitalization)
  Sender: ABBVIE
  Company Number: CO-ABBVIE-6235428

PATIENT
  Age: 48 Year
  Sex: Female
  Weight: 60 kg

DRUGS (3)
  1. RINVOQ [Suspect]
     Active Substance: UPADACITINIB
     Indication: Rheumatoid arthritis
     Dosage: RINVOQ BOTTLE 15 MG
     Route: 048
     Dates: start: 20220712
  2. RINVOQ [Suspect]
     Active Substance: UPADACITINIB
     Indication: Rheumatoid arthritis
     Dosage: RINVOQ BOTTLE 15 MG
     Route: 048
     Dates: end: 20250328
  3. RINVOQ [Suspect]
     Active Substance: UPADACITINIB
     Indication: Rheumatoid arthritis
     Dosage: RINVOQ BOTTLE 15 MG?FIRST ADMIN DATE:2025
     Route: 048

REACTIONS (5)
  - Patella fracture [Recovered/Resolved]
  - Rheumatoid arthritis [Recovered/Resolved]
  - Fall [Recovered/Resolved]
  - Mood altered [Recovered/Resolved]
  - Depressed mood [Unknown]

NARRATIVE: CASE EVENT DATE: 20241216
